FAERS Safety Report 6665885-7 (Version None)
Quarter: 2010Q2

REPORT INFORMATION
  Report Type: 
  Country: None (occurrence: None)
  Receive Date: 20100402
  Receipt Date: 20100323
  Transmission Date: 20101027
  Serious: Yes (Hospitalization)
  Sender: FDA-Public Use
  Company Number: US-RB-005310-10

PATIENT
  Age: 57 Year
  Sex: Male

DRUGS (3)
  1. SUBUTEX [Suspect]
     Route: 060
     Dates: start: 20100216
  2. SUBOXONE [Suspect]
     Route: 060
     Dates: start: 20090901
  3. SUBOXONE [Suspect]
     Route: 060
     Dates: start: 20090101, end: 20100215

REACTIONS (2)
  - ARTHRALGIA [None]
  - ARTHROPATHY [None]
